FAERS Safety Report 5733744-X (Version None)
Quarter: 2008Q2

REPORT INFORMATION
  Report Type: 
  Country: None (occurrence: None)
  Receive Date: 20080509
  Receipt Date: 20080428
  Transmission Date: 20081010
  Serious: Yes (Hospitalization)
  Sender: FDA-Public Use
  Company Number: FR-PFIZER INC-2008037532

PATIENT
  Sex: Male

DRUGS (12)
  1. ALDACTONE [Suspect]
     Route: 048
     Dates: start: 20071206, end: 20071219
  2. FENTANYL-100 [Interacting]
     Dosage: DAILY DOSE:12.5MCG-FREQ:DAILY
     Route: 062
     Dates: start: 20071201, end: 20071216
  3. FENTANYL-100 [Interacting]
     Dosage: DAILY DOSE:25MCG-FREQ:DAILY
     Route: 062
     Dates: start: 20071216, end: 20071219
  4. PERINDOPRIL ERBUMINE [Interacting]
     Route: 048
     Dates: start: 20071206, end: 20071219
  5. MODURETIC 5-50 [Interacting]
     Dosage: TEXT:0.5 DF-FREQ:DAILY
     Route: 048
  6. OGAST [Concomitant]
     Dosage: TEXT:1 DF-FREQ:DAILY
  7. ASPIRIN [Concomitant]
     Dosage: TEXT:1 DF-FREQ:DAILY
  8. NITROGLYCERIN [Concomitant]
     Dosage: TEXT:1 DF-FREQ:DAILY
  9. MOLSIDOMINE [Concomitant]
     Dosage: TEXT:3 DF-FREQ:DAILY
  10. FUROSEMIDE [Concomitant]
     Dosage: TEXT:2 DF-FREQ:DAILY
  11. IPERTEN [Concomitant]
     Dosage: TEXT:1 DF-FREQ:DAILY
  12. PREDNISOLONE [Concomitant]
     Dosage: DAILY DOSE:40MG

REACTIONS (4)
  - ACCIDENTAL OVERDOSE [None]
  - CONFUSIONAL STATE [None]
  - DRUG INTERACTION [None]
  - SOMNOLENCE [None]
